FAERS Safety Report 5244414-9 (Version None)
Quarter: 2007Q1

REPORT INFORMATION
  Report Type: 
  Country: None (occurrence: None)
  Receive Date: 20070222
  Receipt Date: 20070210
  Transmission Date: 20070707
  Serious: Yes (Death, Other)
  Sender: FDA-Public Use
  Company Number: DZ-PFIZER INC-2006148282

PATIENT
  Age: 67 Year
  Sex: Female

DRUGS (5)
  1. CELEBREX [Suspect]
     Indication: OSTEOARTHRITIS
     Route: 048
  2. AMAREL [Concomitant]
  3. GLUCOPHAGE [Concomitant]
  4. TRIATEC [Concomitant]
  5. LOXEN [Concomitant]

REACTIONS (1)
  - DEATH [None]
